FAERS Safety Report 16268457 (Version 6)
Quarter: 2019Q3

REPORT INFORMATION
  Report Type: Spontaneous
  Country: US (occurrence: US)
  Receive Date: 20190503
  Receipt Date: 20190723
  Transmission Date: 20191004
  Serious: Yes (Hospitalization)
  Sender: FDA-Public Use
  Company Number: US-GW PHARMA-201904USGW1245

PATIENT

DRUGS (2)
  1. EPIDIOLEX [Suspect]
     Active Substance: CANNABIDIOL
     Dosage: 110 MILLIGRAM, BID
     Route: 048
     Dates: start: 20190424
  2. EPIDIOLEX [Suspect]
     Active Substance: CANNABIDIOL
     Indication: LENNOX-GASTAUT SYNDROME
     Dosage: 110 MILLIGRAM, BID
     Route: 048
     Dates: start: 20190331, end: 20190423

REACTIONS (6)
  - Device occlusion [Recovered/Resolved]
  - Device occlusion [Recovered/Resolved]
  - Abnormal behaviour [Unknown]
  - Seizure [Unknown]
  - Restlessness [Unknown]
  - Muscle twitching [Unknown]

NARRATIVE: CASE EVENT DATE: 2019
